FAERS Safety Report 23570345 (Version 2)
Quarter: 2024Q1

REPORT INFORMATION
  Report Type: Spontaneous
  Country: DE (occurrence: DE)
  Receive Date: 20240227
  Receipt Date: 20240307
  Transmission Date: 20240409
  Serious: Yes (Other)
  Sender: FDA-Public Use
  Company Number: DE-ADIENNEP-2024AD000124

PATIENT
  Age: 4 Month
  Sex: Female

DRUGS (14)
  1. METHOTREXATE [Suspect]
     Active Substance: METHOTREXATE
     Indication: Autologous haematopoietic stem cell transplant
     Dosage: TANDEM-HIGH-DOSE-CHEMOTHERAPY, 2 HDCT (STARTS ON DAY 28 AFTER FIRST ASCT), 2 MG ON DAY 4, 3, 2, 1
  2. METHOTREXATE [Suspect]
     Active Substance: METHOTREXATE
     Indication: Pineal neoplasm
  3. CYCLOPHOSPHAMIDE [Suspect]
     Active Substance: CYCLOPHOSPHAMIDE
     Indication: Autologous haematopoietic stem cell transplant
     Dosage: TANDEM-HIGH-DOSE-CHEMOTHERAPY, 2 HDCT (STARTS ON DAY +28), 1.5 G/M2 ON DAY -4, -3, -2 BEFORE ASCT
     Route: 042
  4. CYCLOPHOSPHAMIDE [Suspect]
     Active Substance: CYCLOPHOSPHAMIDE
     Indication: Pineal neoplasm
  5. THIOTEPA [Suspect]
     Active Substance: THIOTEPA
     Indication: Autologous haematopoietic stem cell transplant
     Dosage: TANDEM-HIGH-DOSE-CHEMOTHERAPY, 2 HDCT (STARTS ON DAY 28), 300 MG/M2 ON DAY -4, -3, -2 BEFORE ASCT
     Route: 042
  6. THIOTEPA [Suspect]
     Active Substance: THIOTEPA
     Indication: Pineal neoplasm
  7. TROFOSFAMIDE [Suspect]
     Active Substance: TROFOSFAMIDE
     Indication: Pineal neoplasm
     Dosage: 6 CYCLES, ORAL MAINTENANCE THERAPY UNTIL PATIENT REACHED THE AGE OF 18 MONTHS
     Route: 048
  8. ETOPOSIDE [Concomitant]
     Active Substance: ETOPOSIDE
     Indication: Pineal neoplasm
     Dosage: 6 CYCLES, ORAL MAINTENANCE THERAPY UNTIL PATIENT REACHED THE AGE OF 18 MONTHS
     Route: 048
  9. ETOPOSIDE [Concomitant]
     Active Substance: ETOPOSIDE
     Indication: Pineal neoplasm
     Dosage: UNK
  10. METHOTREXATE [Concomitant]
     Active Substance: METHOTREXATE
     Indication: Pineal neoplasm
     Dosage: TANDEM-HIGH-DOSE-CHEMOTHERAPY, 1HDCT, 2 MG ON DAY -8, -7, -6, -5
  11. METHOTREXATE [Concomitant]
     Active Substance: METHOTREXATE
     Dosage: 3 CYCLES CARBO/ETO-96 H-CHEMOTHERAPY, 2MG MTX ON DAY 1,2,3, 4 (STARTS EVERY 30 DAYS)
  12. CARBOPLATIN;ETOPOSIDE [Concomitant]
     Indication: Pineal neoplasm
     Dosage: 1 HDCT, CARBO 2 G/M2 AND ETO 1G/M2 AS CONTINUOUS INFUSION DURING 96 HOURS STARTING ON DAY -8
     Route: 042
  13. CARBOPLATIN;ETOPOSIDE [Concomitant]
     Dosage: 3 CYCLES CARBO/ETO-96 H, CARBO 800 MG/M2 AND ETO 400 MG/M2 CONTINUOUS INFUSION DURING 96 HOURS
     Route: 042
  14. VINCRISTINE [Concomitant]
     Active Substance: VINCRISTINE
     Indication: Pineal neoplasm
     Dosage: UNK, QW (WEEKLY BASIS)
     Route: 042

REACTIONS (3)
  - Second primary malignancy [Unknown]
  - Glioma [Unknown]
  - Venoocclusive liver disease [Recovered/Resolved]
